FAERS Safety Report 23730163 (Version 12)
Quarter: 2025Q3

REPORT INFORMATION
  Report Type: Spontaneous
  Country: US (occurrence: US)
  Receive Date: 20240411
  Receipt Date: 20250701
  Transmission Date: 20251020
  Serious: No
  Sender: BIOGEN
  Company Number: US-BIOGEN-2024BI01259468

PATIENT
  Sex: Female

DRUGS (3)
  1. TYSABRI [Suspect]
     Active Substance: NATALIZUMAB
     Indication: Multiple sclerosis
     Route: 050
     Dates: start: 20230224, end: 20240202
  2. TYSABRI [Suspect]
     Active Substance: NATALIZUMAB
     Route: 050
     Dates: start: 20160630, end: 20211221
  3. TYSABRI [Suspect]
     Active Substance: NATALIZUMAB
     Route: 050
     Dates: start: 20241029

REACTIONS (13)
  - Inappropriate schedule of product administration [Unknown]
  - Multiple sclerosis [Not Recovered/Not Resolved]
  - Memory impairment [Unknown]
  - Gait disturbance [Unknown]
  - Hypokinesia [Unknown]
  - Nasopharyngitis [Unknown]
  - Pain [Unknown]
  - Rhinorrhoea [Unknown]
  - Loss of control of legs [Unknown]
  - Decreased appetite [Unknown]
  - General physical health deterioration [Unknown]
  - Urine sodium abnormal [Unknown]
  - Crystal urine present [Unknown]

NARRATIVE: CASE EVENT DATE: 20240101
